FAERS Safety Report 8029835 (Version 2)
Quarter: 2012Q4

REPORT INFORMATION
  Report Type: 
  Country: US (occurrence: US)
  Receive Date: 20110711
  Receipt Date: 20121005
  Transmission Date: 20130627
  Serious: Yes (Other)
  Sender: FDA-Public Use
  Company Number: US-ASTRAZENECA-2010SE56839

PATIENT
  Age: 58 Year
  Sex: Female

DRUGS (6)
  1. NEXIUM [Suspect]
     Route: 048
  2. CRESTOR [Suspect]
     Route: 048
  3. SIMVASTATIN [Suspect]
     Route: 065
  4. NEURONTIN [Concomitant]
  5. CELEBREX [Concomitant]
  6. HYDROCODONE [Concomitant]

REACTIONS (12)
  - Breast cancer [Unknown]
  - Neuropathy peripheral [Unknown]
  - Nerve injury [Unknown]
  - Muscle spasms [Unknown]
  - Pain [Unknown]
  - Dehydration [Unknown]
  - Menopause [Unknown]
  - Constipation [Unknown]
  - Blood glucose increased [Unknown]
  - Blood triglycerides increased [Unknown]
  - High density lipoprotein decreased [Unknown]
  - Intentional drug misuse [Unknown]
